FAERS Safety Report 9214659 (Version 2)
Quarter: 2013Q2

REPORT INFORMATION
  Report Type: Report from Study
  Country: US (occurrence: US)
  Receive Date: 20130405
  Receipt Date: 20130419
  Transmission Date: 20140414
  Serious: Yes (Death, Hospitalization)
  Sender: FDA-Public Use
  Company Number: US-ROCHE-1207366

PATIENT
  Age: 70 Year
  Sex: Female
  Weight: 206 kg

DRUGS (12)
  1. VEMURAFENIB [Suspect]
     Indication: METASTATIC MALIGNANT MELANOMA
     Dosage: DATE OF LAST DOSE PRIOR TO SAE: 23/MAR/2013
     Route: 048
     Dates: start: 20121205, end: 20130324
  2. GDC-0973 [Suspect]
     Indication: METASTATIC MALIGNANT MELANOMA
     Dosage: DOSAGE FORM: 25 MG +5 MG, DATE OF LAST DOSE PRIOR TO SAE: 19/MAR/2013
     Route: 048
     Dates: start: 20121205, end: 20130324
  3. SENNA [Concomitant]
     Route: 065
     Dates: start: 20121202
  4. METFORMIN HYDROCHLORIDE [Concomitant]
     Route: 065
     Dates: start: 20121202
  5. ALBUTEROL INHALER [Concomitant]
     Dosage: 2 PUFFS
     Route: 065
     Dates: start: 2000
  6. LEVOTHYROXINE [Concomitant]
     Route: 065
     Dates: start: 20111027
  7. MILNACIPRAN [Concomitant]
     Route: 065
     Dates: start: 2011
  8. PRAMIPEXOLE [Concomitant]
     Route: 065
     Dates: start: 20111027
  9. ONDANSETRON [Concomitant]
     Route: 065
     Dates: start: 20121212
  10. LORAZEPAM [Concomitant]
     Route: 065
     Dates: start: 20130214
  11. MS CONTIN [Concomitant]
     Route: 065
     Dates: start: 20121202
  12. MS CONTIN [Concomitant]
     Route: 065
     Dates: start: 20130324

REACTIONS (1)
  - Generalised oedema [Fatal]
